FAERS Safety Report 8621334-0 (Version None)
Quarter: 2012Q3

REPORT INFORMATION
  Report Type: 
  Country: None (occurrence: None)
  Receive Date: 20120824
  Receipt Date: 20120820
  Transmission Date: 20120928
  Serious: Yes (Other)
  Sender: FDA-Public Use
  Company Number: JP-ROCHE-1089767

PATIENT
  Sex: Male
  Weight: 58 kg

DRUGS (14)
  1. MIRCERA [Suspect]
     Indication: NEPHROGENIC ANAEMIA
     Route: 042
     Dates: start: 20120412, end: 20120508
  2. ROCALTROL [Concomitant]
     Indication: HYPOCALCAEMIA
     Route: 048
  3. MIRCERA [Suspect]
     Route: 042
     Dates: start: 20120510, end: 20120703
  4. FAMOTIDINE [Concomitant]
     Indication: GASTRITIS
     Route: 048
  5. PANALDINE [Suspect]
     Indication: PROPHYLAXIS
     Route: 048
     Dates: end: 20120706
  6. TRANDOLAPRIL [Concomitant]
     Indication: HYPERTENSION
     Route: 048
  7. DIOCTYL SODIUM SULFOSUCCINATE [Concomitant]
     Indication: CONSTIPATION
     Dosage: DRUG REPORTED VENCOLL
     Route: 048
  8. ASPIRIN [Concomitant]
     Indication: CEREBRAL INFARCTION
     Route: 048
  9. LIPITOR [Suspect]
     Indication: HYPERLIPIDAEMIA
     Route: 048
     Dates: end: 20120706
  10. NICARDIPINE HCL [Concomitant]
     Indication: HYPERTENSION
     Route: 048
  11. ZADITEN [Suspect]
     Indication: PRURITUS GENERALISED
     Route: 048
     Dates: end: 20120706
  12. SIGMART [Concomitant]
     Indication: ANGINA PECTORIS
     Route: 048
  13. PRECIPITATED CALCIUM CARBONATE [Concomitant]
     Indication: HYPERPHOSPHATAEMIA
     Route: 048
  14. MUCOSOLVAN L [Concomitant]
     Indication: BRONCHITIS CHRONIC
     Route: 048

REACTIONS (1)
  - DRUG-INDUCED LIVER INJURY [None]
